FAERS Safety Report 9235520 (Version 1)
Quarter: 2013Q1

REPORT INFORMATION
  Report Type: Spontaneous
  Country: US (occurrence: None)
  Receive Date: 20121031
  Receipt Date: 20121031
  Transmission Date: 20140127
  Serious: No
  Sender: FDA-Public Use
  Company Number: PHEH2012US011950

PATIENT
  Age: 56 Year
  Sex: Female
  Weight: 106.6 kg

DRUGS (5)
  1. GILENYA ( FTY) CAPSULE, 0.5 MG [Suspect]
     Route: 048
  2. VITAMIN D ( ERGOCALCIFEROL) CHEWABLE TABLET [Concomitant]
  3. GLIPIZIDE ( GLIPIZIDE) TABLET [Concomitant]
  4. LISINOPRIL ( LISINOPRIL) [Concomitant]
  5. BACLOFEN ( BACLOFEN) [Concomitant]

REACTIONS (4)
  - Skin odour abnormal [None]
  - Libido increased [None]
  - Nausea [None]
  - Vision blurred [None]
